FAERS Safety Report 4677591-9 (Version None)
Quarter: 2005Q2

REPORT INFORMATION
  Report Type: 
  Country: None (occurrence: None)
  Receive Date: 20050527
  Receipt Date: 20050527
  Transmission Date: 20051028
  Serious: No
  Sender: FDA-Public Use
  Company Number: None

PATIENT
  Sex: Female
  Weight: 42.2 kg

DRUGS (2)
  1. CISPLATIN [Suspect]
     Indication: NEOPLASM MALIGNANT
     Dates: start: 20050315
  2. RADIATION [Suspect]

REACTIONS (5)
  - ANAEMIA [None]
  - HEADACHE [None]
  - HYPOKALAEMIA [None]
  - SEPTIC SHOCK [None]
  - UPPER RESPIRATORY TRACT INFECTION [None]
